FAERS Safety Report 15290555 (Version 5)
Quarter: 2019Q1

REPORT INFORMATION
  Report Type: Report from Study
  Country: DE (occurrence: DE)
  Receive Date: 20180817
  Receipt Date: 20190329
  Transmission Date: 20190417
  Serious: Yes (Other)
  Sender: FDA-Public Use
  Company Number: PHHY2018DE066092

PATIENT
  Sex: Female
  Weight: 58.8 kg

DRUGS (4)
  1. LETROZOLE 1A PHARMA [Suspect]
     Active Substance: LETROZOLE
     Indication: BREAST CANCER METASTATIC
     Dosage: 2.5 MG, 1/D
     Route: 048
     Dates: start: 20180702, end: 20180730
  2. KISQALI [Suspect]
     Active Substance: RIBOCICLIB
     Indication: BREAST CANCER METASTATIC
     Dosage: 200 MG, 21/7
     Route: 048
     Dates: start: 20180702, end: 20180730
  3. KISQALI [Suspect]
     Active Substance: RIBOCICLIB
     Dosage: 200 MG, 21/7
     Route: 048
     Dates: start: 20180806
  4. LETROZOLE 1A PHARMA [Suspect]
     Active Substance: LETROZOLE
     Dosage: 2.5 MG, 1/D
     Route: 048
     Dates: start: 20180806

REACTIONS (5)
  - Alopecia [Unknown]
  - Visual impairment [Unknown]
  - Ulcer [Unknown]
  - Neutropenia [Recovered/Resolved]
  - Gastric disorder [Unknown]

NARRATIVE: CASE EVENT DATE: 20180730
